FAERS Safety Report 5690127-9 (Version None)
Quarter: 2008Q2

REPORT INFORMATION
  Report Type: 
  Country: None (occurrence: None)
  Receive Date: 20080401
  Receipt Date: 20080401
  Transmission Date: 20081010
  Serious: No
  Sender: FDA-Public Use
  Company Number: None

PATIENT
  Sex: Female
  Weight: 65 kg

DRUGS (3)
  1. HEPARIN [Suspect]
     Dosage: 3 ML VD/BID IV
     Route: 042
     Dates: start: 20080108, end: 20080228
  2. HEPARIN [Suspect]
  3. CEFTRIAXONE [Concomitant]

REACTIONS (3)
  - ASTHENIA [None]
  - NAUSEA [None]
  - VOMITING [None]
